FAERS Safety Report 10060677 (Version 3)
Quarter: 2014Q2

REPORT INFORMATION
  Report Type: Spontaneous
  Country: US (occurrence: KY)
  Receive Date: 20140404
  Receipt Date: 20140616
  Transmission Date: 20141212
  Serious: Yes (Other)
  Sender: FDA-Public Use
  Company Number: US-PFIZER INC-2013184130

PATIENT
  Age: 57 Year
  Sex: Female
  Weight: 65.76 kg

DRUGS (19)
  1. LYRICA [Suspect]
     Indication: NEURALGIA
     Dosage: 150 MG, 2X/DAY
     Route: 048
     Dates: start: 2011
  2. LYRICA [Suspect]
     Indication: CONVULSION
     Dosage: 200 MG, 3X/DAY
     Route: 048
  3. LYRICA [Suspect]
     Dosage: 600 MG, 1X/DAY
  4. LYRICA [Suspect]
     Dosage: 75 MG , 4 AM/6 PM
     Route: 048
  5. CLONAZEPAM [Concomitant]
     Dosage: 1 MG, 2X/DAY
  6. ORPHENADRINE [Concomitant]
     Dosage: 100 MG, UNK
  7. LISINOPRIL [Concomitant]
     Dosage: 5 MG, 1X/DAY
  8. TRAMADOL [Concomitant]
     Indication: PAIN
     Dosage: 50 MG (EVERY SIX HOURS), 4X/DAY
  9. LORAZEPAM [Concomitant]
     Dosage: 1 MG, 4X/DAY
  10. CLOPIDOGREL [Concomitant]
     Dosage: 75 MG, 1X/DAY
  11. VITAMIN D [Concomitant]
     Dosage: UNK, 1X/DAY
  12. CETIRIZINE [Concomitant]
     Indication: ANTIALLERGIC THERAPY
     Dosage: 10 MG, 1X/DAY
  13. AMBIEN [Concomitant]
     Dosage: UNK
  14. ATIVAN [Concomitant]
     Dosage: 1 MG, 4X/DAY
  15. PLAVIX [Concomitant]
     Dosage: 75 MG, 1X/DAY
  16. SALMETEROL [Concomitant]
     Dosage: UNK
  17. FLUTICASONE PROPIONATE [Concomitant]
     Dosage: UNK
  18. ORPHENADRINE CITRATE [Concomitant]
     Dosage: UNK
  19. CO-DYDRAMOL [Concomitant]
     Dosage: 500/10 MG, 1-2 QD
     Route: 048

REACTIONS (4)
  - Drug abuse [Unknown]
  - Dizziness [Recovered/Resolved]
  - Abdominal discomfort [Unknown]
  - Treatment noncompliance [Unknown]
